FAERS Safety Report 13885194 (Version 1)
Quarter: 2017Q3

REPORT INFORMATION
  Report Type: Spontaneous
  Country: ZA (occurrence: ZA)
  Receive Date: 20170821
  Receipt Date: 20170821
  Transmission Date: 20171127
  Serious: Yes (Other)
  Sender: FDA-Public Use
  Company Number: PHHY2017ZA107010

PATIENT
  Sex: Male

DRUGS (1)
  1. GILENYA [Suspect]
     Active Substance: FINGOLIMOD HYDROCHLORIDE
     Indication: PRODUCT USED FOR UNKNOWN INDICATION
     Dosage: UNK
     Route: 065

REACTIONS (9)
  - Loss of consciousness [Recovered/Resolved]
  - Eye movement disorder [Recovered/Resolved]
  - Syncope [Recovered/Resolved]
  - Musculoskeletal stiffness [Recovered/Resolved]
  - Seizure [Recovered/Resolved]
  - Presyncope [Recovered/Resolved]
  - Lymphopenia [Recovered/Resolved]
  - Movement disorder [Recovered/Resolved]
  - Multiple sclerosis relapse [Recovered/Resolved]
